FAERS Safety Report 10012086 (Version 2)
Quarter: 2014Q2

REPORT INFORMATION
  Report Type: Spontaneous
  Country: AU (occurrence: AU)
  Receive Date: 20140314
  Receipt Date: 20140515
  Transmission Date: 20141212
  Serious: Yes (Other)
  Sender: FDA-Public Use
  Company Number: AU-PFIZER INC-2014068932

PATIENT
  Age: 72 Year
  Sex: Female
  Weight: 69.75 kg

DRUGS (4)
  1. SUTENT [Suspect]
     Indication: THYROID CANCER
     Dosage: 37.5 MG, DAILY, FOUR WEEKS EVERY SIX WEEKLY
     Dates: start: 201102
  2. SUTENT [Suspect]
     Dosage: 25 MG, UNK
     Dates: start: 201206
  3. SUTENT [Suspect]
     Dosage: 37.5 MG, FOUR WEEKS ON, TWO WEEKS OFF
     Dates: start: 201210
  4. SUTENT [Suspect]
     Dosage: 50 MG, ONCE DAILY, FOUR WEEKS ON, TWO WEEKS OFF
     Route: 048
     Dates: start: 20140103

REACTIONS (8)
  - Choking [Not Recovered/Not Resolved]
  - Neutropenia [Recovered/Resolved]
  - Disease progression [Not Recovered/Not Resolved]
  - Thyroid cancer [Not Recovered/Not Resolved]
  - Fatigue [Not Recovered/Not Resolved]
  - Diarrhoea [Not Recovered/Not Resolved]
  - Blood pressure increased [Not Recovered/Not Resolved]
  - Off label use [Recovered/Resolved]
